FAERS Safety Report 25924576 (Version 1)
Quarter: 2025Q4

REPORT INFORMATION
  Report Type: Spontaneous
  Country: GB (occurrence: None)
  Receive Date: 20251012
  Receipt Date: 20251012
  Transmission Date: 20260117
  Serious: Yes (Disabling, Other)
  Sender: FDA-CTU
  Company Number: None

PATIENT
  Age: 39 Year
  Sex: Male
  Weight: 73 kg

DRUGS (7)
  1. SERTRALINE HYDROCHLORIDE [Suspect]
     Active Substance: SERTRALINE HYDROCHLORIDE
     Indication: Affective disorder
     Dosage: OTHER QUANTITY : 5 5ML ONCE DAILY;?FREQUENCY : DAILY;?
     Route: 048
     Dates: start: 20250807
  2. SERTRALINE HYDROCHLORIDE [Suspect]
     Active Substance: SERTRALINE HYDROCHLORIDE
     Indication: Anxiety
  3. SERTRALINE [Concomitant]
     Active Substance: SERTRALINE HYDROCHLORIDE
  4. TESTOSTERONE [Concomitant]
     Active Substance: TESTOSTERONE
  5. COD LIVER OIL [Concomitant]
     Active Substance: COD LIVER OIL
  6. MAGNESIUM [Concomitant]
     Active Substance: MAGNESIUM
  7. VITAMIN D [Concomitant]
     Active Substance: VITAMIN D NOS

REACTIONS (26)
  - Drug withdrawal syndrome [None]
  - Sexual dysfunction [None]
  - Panic attack [None]
  - Suicidal ideation [None]
  - Anhedonia [None]
  - Memory impairment [None]
  - Sleep disorder [None]
  - Fatigue [None]
  - Lethargy [None]
  - Abnormal dreams [None]
  - Tinnitus [None]
  - Fear [None]
  - Anxiety [None]
  - Tinnitus [None]
  - Blunted affect [None]
  - Depressed mood [None]
  - Feeling of despair [None]
  - Erectile dysfunction [None]
  - Anorgasmia [None]
  - Confusional state [None]
  - Disturbance in attention [None]
  - Obsessive-compulsive disorder [None]
  - Intrusive thoughts [None]
  - Pain [None]
  - Burning sensation [None]
  - Sexual dysfunction [None]

NARRATIVE: CASE EVENT DATE: 20240701
